FAERS Safety Report 7687495 (Version 5)
Quarter: 2013Q3

REPORT INFORMATION
  Report Type: Spontaneous
  Country: US (occurrence: US)
  Receive Date: 20101130
  Receipt Date: 20130812
  Transmission Date: 20140515
  Serious: Yes (Hospitalization, Other)
  Sender: FDA-Public Use
  Company Number: US-ROCHE-722572

PATIENT
  Sex: Male
  Weight: 81.6 kg

DRUGS (7)
  1. ACCUTANE [Suspect]
     Indication: ACNE
     Route: 048
     Dates: start: 198808, end: 198906
  2. ACCUTANE [Suspect]
     Route: 048
  3. HYDROCORTISONE [Concomitant]
     Route: 065
  4. LIPITOR [Concomitant]
     Route: 048
  5. ATENOLOL [Concomitant]
     Dosage: DOSE AMOUNT : 25 MG, 50 MG
     Route: 065
  6. ASACOL [Concomitant]
     Route: 065
  7. AMITRIPTYLINE HCL [Concomitant]
     Route: 065

REACTIONS (14)
  - Small intestinal obstruction [Unknown]
  - Intestinal infarction [Unknown]
  - Colitis ulcerative [Not Recovered/Not Resolved]
  - Rectal haemorrhage [Unknown]
  - Abdominal pain [Unknown]
  - Nausea [Unknown]
  - Inflammatory bowel disease [Unknown]
  - Large intestinal ulcer [Unknown]
  - Arthralgia [Unknown]
  - Osteopenia [Unknown]
  - Arthritis [Unknown]
  - Osteoporosis [Unknown]
  - Dry eye [Unknown]
  - Lip dry [Unknown]
